FAERS Safety Report 8070491-6 (Version None)
Quarter: 2012Q1

REPORT INFORMATION
  Report Type: 
  Country: None (occurrence: None)
  Receive Date: 20120125
  Receipt Date: 20120112
  Transmission Date: 20120608
  Serious: Yes (Hospitalization)
  Sender: FDA-Public Use
  Company Number: IE-MEDIMMUNE-MEDI-0014594

PATIENT
  Sex: Female
  Weight: 5.25 kg

DRUGS (4)
  1. SYNAGIS [Suspect]
     Route: 030
     Dates: start: 20111017, end: 20111017
  2. FERROUS SULFATE TAB [Concomitant]
  3. GAVISCON [Concomitant]
  4. KAPSOVIT [Concomitant]

REACTIONS (3)
  - GASTROOESOPHAGEAL REFLUX DISEASE [None]
  - ASPIRATION [None]
  - REGURGITATION [None]
